FAERS Safety Report 5180917-3 (Version None)
Quarter: 2006Q4

REPORT INFORMATION
  Report Type: 
  Country: None (occurrence: None)
  Receive Date: 20061218
  Receipt Date: 20061218
  Transmission Date: 20070319
  Serious: Yes (Hospitalization, Other)
  Sender: FDA-Public Use
  Company Number: None

PATIENT
  Sex: Male

DRUGS (1)
  1. SUTENT [Suspect]
     Indication: NEOPLASM MALIGNANT

REACTIONS (4)
  - FAECES DISCOLOURED [None]
  - SKIN ODOUR ABNORMAL [None]
  - TONGUE DISCOLOURATION [None]
  - YELLOW SKIN [None]
